FAERS Safety Report 9054502 (Version 1)
Quarter: 2013Q1

REPORT INFORMATION
  Report Type: Spontaneous
  Country: US (occurrence: US)
  Receive Date: 20130208
  Receipt Date: 20130208
  Transmission Date: 20140127
  Serious: No
  Sender: FDA-Public Use
  Company Number: US-GLAXOSMITHKLINE-A0996330A

PATIENT
  Age: 69 Year
  Sex: Male

DRUGS (2)
  1. PAXIL [Suspect]
     Indication: DEPRESSION
     Dates: start: 20120614
  2. TETRABENAZINE [Suspect]
     Indication: HUNTINGTON^S DISEASE
     Dosage: 25MG TWICE PER DAY
     Route: 048

REACTIONS (1)
  - Feeling abnormal [Recovered/Resolved]
